FAERS Safety Report 20520900 (Version 2)
Quarter: 2022Q2

REPORT INFORMATION
  Report Type: Spontaneous
  Country: JP (occurrence: JP)
  Receive Date: 20220225
  Receipt Date: 20220419
  Transmission Date: 20220721
  Serious: Yes (Life-Threatening, Other)
  Sender: FDA-Public Use
  Company Number: JP-JAZZ-2022-JP-004233

PATIENT
  Age: 37 Year
  Sex: Female
  Weight: 64.1 kg

DRUGS (2)
  1. DEFITELIO [Suspect]
     Active Substance: DEFIBROTIDE SODIUM
     Indication: Venoocclusive liver disease
     Dosage: 25 MG/KG/24 HOURS
     Route: 042
     Dates: start: 20191210, end: 20191230
  2. DEFITELIO [Suspect]
     Active Substance: DEFIBROTIDE SODIUM
     Dosage: 25 MG/KG/24 HOURS
     Route: 042
     Dates: start: 20200225, end: 20200227

REACTIONS (2)
  - Upper gastrointestinal haemorrhage [Recovered/Resolved]
  - Gastric antral vascular ectasia [Recovering/Resolving]

NARRATIVE: CASE EVENT DATE: 20200211
